FAERS Safety Report 7507319-6 (Version None)
Quarter: 2011Q2

REPORT INFORMATION
  Report Type: 
  Country: None (occurrence: None)
  Receive Date: 20110526
  Receipt Date: 20110520
  Transmission Date: 20111010
  Serious: Yes (Other)
  Sender: FDA-Public Use
  Company Number: US-GILEAD-2011-0039889

PATIENT
  Sex: Female

DRUGS (5)
  1. LETAIRIS [Suspect]
     Indication: PULMONARY HYPERTENSION
     Dates: start: 20100101
  2. LETAIRIS [Suspect]
     Dates: start: 20101001
  3. KLOR-CON [Concomitant]
  4. WARFARIN SODIUM [Concomitant]
  5. FUROSEMIDE [Concomitant]

REACTIONS (1)
  - PREGNANCY [None]
